FAERS Safety Report 16647505 (Version 3)
Quarter: 2019Q3

REPORT INFORMATION
  Report Type: Spontaneous
  Country: US (occurrence: US)
  Receive Date: 20190730
  Receipt Date: 20190930
  Transmission Date: 20191004
  Serious: No
  Sender: FDA-Public Use
  Company Number: US-PFIZER INC-2019322914

PATIENT
  Age: 66 Year
  Sex: Female
  Weight: 72.56 kg

DRUGS (2)
  1. XELJANZ XR [Suspect]
     Active Substance: TOFACITINIB CITRATE
     Dosage: UNK, 1X/DAY
     Dates: start: 201904
  2. XELJANZ XR [Suspect]
     Active Substance: TOFACITINIB CITRATE
     Indication: RHEUMATOID ARTHRITIS
     Dosage: 11 MG, UNK

REACTIONS (4)
  - Rash papular [Unknown]
  - Skin disorder [Unknown]
  - Pruritus [Unknown]
  - Acne [Not Recovered/Not Resolved]
